FAERS Safety Report 10490410 (Version 1)
Quarter: 2014Q4

REPORT INFORMATION
  Report Type: Spontaneous
  Country: US (occurrence: US)
  Receive Date: 20141002
  Receipt Date: 20141002
  Transmission Date: 20150528
  Serious: Yes (Hospitalization, Other)
  Sender: FDA-Public Use
  Company Number: US-B.I. PHARMACEUTICALS,INC./RIDGEFIELD-2014-BI-46474BP

PATIENT
  Age: 40 Year
  Sex: Male

DRUGS (1)
  1. PRADAXA [Suspect]
     Active Substance: DABIGATRAN ETEXILATE MESYLATE
     Indication: AORTIC VALVE REPLACEMENT
     Route: 065
     Dates: end: 20120323

REACTIONS (5)
  - Cardiac failure congestive [Unknown]
  - Fluid overload [Unknown]
  - Atrioventricular block complete [Unknown]
  - Mitral valve disease [Recovered/Resolved]
  - Ventricular septal defect [Recovered/Resolved]

NARRATIVE: CASE EVENT DATE: 201203
